FAERS Safety Report 8145657-7 (Version None)
Quarter: 2012Q1

REPORT INFORMATION
  Report Type: 
  Country: None (occurrence: None)
  Receive Date: 20120217
  Receipt Date: 20120213
  Transmission Date: 20120608
  Serious: Yes (Death, Hospitalization)
  Sender: FDA-Public Use
  Company Number: US-CELGENEUS-163-21880-11123594

PATIENT
  Sex: Male

DRUGS (1)
  1. REVLIMID [Suspect]
     Indication: MULTIPLE MYELOMA
     Dosage: 25 MILLIGRAM
     Route: 048
     Dates: start: 20111220, end: 20111223

REACTIONS (5)
  - VOMITING [None]
  - MULTIPLE MYELOMA [None]
  - CARDIAC FAILURE [None]
  - DIARRHOEA [None]
  - SEPSIS [None]
